FAERS Safety Report 18980985 (Version 1)
Quarter: 2021Q1

REPORT INFORMATION
  Report Type: Report from Study
  Country: US (occurrence: US)
  Receive Date: 20210308
  Receipt Date: 20210308
  Transmission Date: 20210420
  Serious: Yes (Other)
  Sender: FDA-Public Use
  Company Number: US-MALLINCKRODT-T202100914

PATIENT
  Age: 77 Year
  Sex: Female
  Weight: 55 kg

DRUGS (1)
  1. REPOSITORY CORTICOTROPIN INJECTION [Suspect]
     Active Substance: CORTICOTROPIN
     Indication: SARCOIDOSIS
     Dosage: 40 UNITS TWICE A WEEK
     Route: 058
     Dates: start: 20210218, end: 202102

REACTIONS (8)
  - Headache [Unknown]
  - Dizziness [Unknown]
  - Nausea [Not Recovered/Not Resolved]
  - Diarrhoea [Not Recovered/Not Resolved]
  - Hypophagia [Unknown]
  - Hallucination [Not Recovered/Not Resolved]
  - Abdominal pain [Recovered/Resolved]
  - Fatigue [Recovered/Resolved]

NARRATIVE: CASE EVENT DATE: 202102
